FAERS Safety Report 8414131-2 (Version None)
Quarter: 2012Q2

REPORT INFORMATION
  Report Type: 
  Country: None (occurrence: None)
  Receive Date: 20120605
  Receipt Date: 20120531
  Transmission Date: 20120825
  Serious: No
  Sender: FDA-Public Use
  Company Number: US-BAYER-2012-055009

PATIENT
  Age: 37 Year
  Sex: Female

DRUGS (3)
  1. BETASERON [Suspect]
     Dosage: 1 ML, QOD
     Route: 058
  2. BETASERON [Suspect]
     Indication: MULTIPLE SCLEROSIS
     Dosage: 0.50 ML, QOD
     Route: 058
  3. BETASERON [Suspect]
     Dosage: 0.75 ML, QOD
     Route: 058

REACTIONS (2)
  - HEADACHE [None]
  - MYALGIA [None]
